FAERS Safety Report 5367315-4 (Version None)
Quarter: 2007Q2

REPORT INFORMATION
  Report Type: 
  Country: None (occurrence: None)
  Receive Date: 20070622
  Receipt Date: 20060420
  Transmission Date: 20071010
  Serious: No
  Sender: FDA-Public Use
  Company Number: US-ASTRAZENECA-2006UW07163

PATIENT
  Age: 44 Year
  Sex: Female
  Weight: 56.8 kg

DRUGS (3)
  1. PULMICORT [Suspect]
     Indication: VIRAL INFECTION
     Route: 055
     Dates: start: 20050330
  2. XOPENEX [Suspect]
     Indication: VIRAL INFECTION
     Dosage: 0.63 MG/3 ML
     Route: 055
     Dates: start: 20050330, end: 20050330
  3. IBUPROFEN [Concomitant]

REACTIONS (1)
  - CHOKING SENSATION [None]
